FAERS Safety Report 5157756-2 (Version None)
Quarter: 2006Q4

REPORT INFORMATION
  Report Type: 
  Country: None (occurrence: None)
  Receive Date: 20061115
  Receipt Date: 20061030
  Transmission Date: 20070319
  Serious: Yes (Hospitalization, Other)
  Sender: FDA-Public Use
  Company Number: 2005EU002747

PATIENT
  Age: 50 Year
  Sex: Female

DRUGS (3)
  1. PROTOPIC [Suspect]
     Dosage: UNKNOWN/D, TOPICAL
     Route: 061
     Dates: start: 20030915
  2. ARGRETIN (BEXAROTENE) [Suspect]
     Indication: MYCOSIS FUNGOIDES
     Dosage: 300 MG/M2, UID/QD, ORAL
     Route: 048
     Dates: start: 20050321
  3. LIPANTHYL                           (FENOFIBRATE) [Suspect]
     Dosage: 160 MG, UID/QD, ORAL
     Route: 048
     Dates: start: 20050321

REACTIONS (10)
  - ARTHRALGIA [None]
  - ASTHENIA [None]
  - DERMATITIS EXFOLIATIVE [None]
  - FACE OEDEMA [None]
  - HYPERKERATOSIS [None]
  - INGUINAL HERNIA [None]
  - MUSCULAR WEAKNESS [None]
  - MYALGIA [None]
  - PARAESTHESIA [None]
  - PHOTOSENSITIVITY REACTION [None]
